FAERS Safety Report 21649379 (Version 1)
Quarter: 2022Q4

REPORT INFORMATION
  Report Type: Spontaneous
  Country: DE (occurrence: DE)
  Receive Date: 20221128
  Receipt Date: 20221128
  Transmission Date: 20230112
  Serious: Yes (Hospitalization)
  Sender: FDA-Public Use
  Company Number: None

PATIENT
  Age: 63 Year
  Sex: Female
  Weight: 76 kg

DRUGS (8)
  1. FLUOROURACIL [Suspect]
     Active Substance: FLUOROURACIL
     Indication: Product used for unknown indication
  2. OXALIPLATIN [Suspect]
     Active Substance: OXALIPLATIN
     Indication: Product used for unknown indication
  3. LEUCOVORIN [Suspect]
     Active Substance: LEUCOVORIN
     Indication: Product used for unknown indication
  4. GRANISETRON [Concomitant]
     Active Substance: GRANISETRON
     Dosage: 2 MG, AS REQUIRED
  5. MIRTAZAPINE [Concomitant]
     Active Substance: MIRTAZAPINE
     Dosage: 15MG, 0-0-0-1, LOZENGES
  6. FENTANYL CITRATE [Concomitant]
     Active Substance: FENTANYL CITRATE
     Dosage: 100 MICROGRAM, AS REQUIRED
  7. AMOXICILLIN\CLAVULANIC ACID [Concomitant]
     Active Substance: AMOXICILLIN\CLAVULANIC ACID
     Dosage: 875/125 MG, 1-0-1-0
  8. FENTANYL [Concomitant]
     Active Substance: FENTANYL
     Dosage: 25 MCG/H, CHANGE EVERY 3 DAYS, TRANSDERMAL PATCH

REACTIONS (3)
  - Vomiting [Unknown]
  - Nausea [Unknown]
  - Musculoskeletal pain [Unknown]
